FAERS Safety Report 5925540-5 (Version None)
Quarter: 2008Q4

REPORT INFORMATION
  Report Type: 
  Country: None (occurrence: None)
  Receive Date: 20081021
  Receipt Date: 20081016
  Transmission Date: 20090506
  Serious: Yes (Other)
  Sender: FDA-Public Use
  Company Number: PHEH2008US08831

PATIENT
  Sex: Female
  Weight: 125 kg

DRUGS (2)
  1. GLEEVEC [Suspect]
     Indication: MALIGNANT LYMPHOID NEOPLASM
     Dosage: 400 MG, QD
     Route: 048
     Dates: start: 20080601, end: 20080901
  2. GLEEVEC [Suspect]
     Indication: ROSAI-DORFMAN SYNDROME
     Dosage: 300 MG, QD
     Route: 048
     Dates: start: 20080901, end: 20081001

REACTIONS (5)
  - DISEASE PROGRESSION [None]
  - DRUG INEFFECTIVE [None]
  - EYE DISORDER [None]
  - FATIGUE [None]
  - LEUKOCYTOSIS [None]
